FAERS Safety Report 25242642 (Version 2)
Quarter: 2025Q2

REPORT INFORMATION
  Report Type: Report from Study
  Country: US (occurrence: US)
  Receive Date: 20250427
  Receipt Date: 20250429
  Transmission Date: 20250717
  Serious: Yes (Hospitalization, Other)
  Sender: MERCK SHARP & DOHME LLC
  Company Number: US-009507513-2305USA004250

PATIENT
  Age: 72 Year
  Sex: Male

DRUGS (1)
  1. JANUVIA [Suspect]
     Active Substance: SITAGLIPTIN PHOSPHATE
     Dosage: 100 MILLIGRAM, QD, ONE TABLET BY MOUTH DAILY, STRENGTH 100 MG
     Route: 048

REACTIONS (3)
  - Spinal operation [Unknown]
  - Hospitalisation [Unknown]
  - Paralysis [Unknown]

NARRATIVE: CASE EVENT DATE: 20230401
